FAERS Safety Report 4871258-X (Version None)
Quarter: 2005Q4

REPORT INFORMATION
  Report Type: 
  Country: None (occurrence: None)
  Receive Date: 20051229
  Receipt Date: 20051216
  Transmission Date: 20060501
  Serious: Yes (Other)
  Sender: FDA-Public Use
  Company Number: 2005169933

PATIENT
  Age: 62 Year
  Sex: Female

DRUGS (5)
  1. MINIPRESS [Suspect]
     Indication: HYPERTENSION
     Dosage: 2 MG (1 MG, BID INTERVAL: EVERY DAY) , ORAL
     Route: 048
  2. PRAZOSIN GITS [Suspect]
     Indication: HYPERTENSION
     Dosage: 6 MG (2 MG, TID INTERVAL: EVERY DAY), ORAL
     Route: 048
  3. ZETIA [Suspect]
     Indication: BLOOD CHOLESTEROL INCREASED
  4. ANTIHYPERTENSIVES (ANTIHYPERTENSIVES) [Suspect]
     Indication: HYPERTENSION
     Dates: end: 20040101
  5. LEVOXYL [Concomitant]

REACTIONS (23)
  - ARTHRALGIA [None]
  - BLINDNESS TRANSIENT [None]
  - BLINDNESS UNILATERAL [None]
  - BLOOD CHOLESTEROL INCREASED [None]
  - BODY HEIGHT DECREASED [None]
  - CERVICAL DYSPLASIA [None]
  - CONDITION AGGRAVATED [None]
  - EYE HAEMORRHAGE [None]
  - HYPERTENSION [None]
  - OEDEMA MOUTH [None]
  - PAIN [None]
  - PANIC REACTION [None]
  - PHARMACEUTICAL PRODUCT COMPLAINT [None]
  - POST PROCEDURAL COMPLICATION [None]
  - POSTOPERATIVE WOUND COMPLICATION [None]
  - PROCEDURAL PAIN [None]
  - PROCEDURAL SITE REACTION [None]
  - RHEUMATOID ARTHRITIS [None]
  - SWELLING [None]
  - THERAPEUTIC RESPONSE UNEXPECTED WITH DRUG SUBSTITUTION [None]
  - ULTRASOUND SCAN ABNORMAL [None]
  - UTERINE POLYP [None]
  - WEIGHT INCREASED [None]
